FAERS Safety Report 9405057 (Version 5)
Quarter: 2014Q3

REPORT INFORMATION
  Report Type: Spontaneous
  Country: US (occurrence: US)
  Receive Date: 20130717
  Receipt Date: 20140714
  Transmission Date: 20150326
  Serious: No
  Sender: FDA-Public Use
  Company Number: US-009507513-1307USA008660

PATIENT

DRUGS (4)
  1. EMEND [Suspect]
     Active Substance: APREPITANT
     Indication: PROPHYLAXIS OF NAUSEA AND VOMITING
     Dosage: CONCENTRATION:1MG/ML
     Route: 042
  2. CYCLOPHOSPHAMIDE. [Concomitant]
     Active Substance: CYCLOPHOSPHAMIDE
  3. EMEND [Suspect]
     Active Substance: APREPITANT
     Indication: PROPHYLAXIS OF NAUSEA AND VOMITING
     Route: 048
  4. DOXORUBICIN [Concomitant]
     Active Substance: DOXORUBICIN

REACTIONS (8)
  - Thrombophlebitis [Unknown]
  - Extravasation [Unknown]
  - Vein discolouration [Unknown]
  - Infusion site warmth [Unknown]
  - Infusion site pain [Unknown]
  - Swelling [Unknown]
  - Infusion site reaction [Unknown]
  - Deep vein thrombosis [Unknown]
